FAERS Safety Report 23576830 (Version 2)
Quarter: 2024Q1

REPORT INFORMATION
  Report Type: Spontaneous
  Country: ES (occurrence: ES)
  Receive Date: 20240228
  Receipt Date: 20240305
  Transmission Date: 20240409
  Serious: Yes (Death, Other)
  Sender: FDA-Public Use
  Company Number: ES-PFM-2024-01288

PATIENT
  Age: 73 Year
  Sex: Female

DRUGS (6)
  1. ENCORAFENIB [Suspect]
     Active Substance: ENCORAFENIB
     Indication: Colon cancer
     Dosage: UNK
     Route: 065
  2. ENCORAFENIB [Suspect]
     Active Substance: ENCORAFENIB
     Indication: BRAF gene mutation
  3. BINIMETINIB [Suspect]
     Active Substance: BINIMETINIB
     Indication: Colon cancer
     Dosage: UNK
     Route: 065
  4. BINIMETINIB [Suspect]
     Active Substance: BINIMETINIB
     Indication: BRAF gene mutation
  5. CETUXIMAB [Suspect]
     Active Substance: CETUXIMAB
     Indication: Colon cancer
     Dosage: UNK
     Route: 065
  6. CETUXIMAB [Suspect]
     Active Substance: CETUXIMAB
     Indication: BRAF gene mutation

REACTIONS (2)
  - Death [Fatal]
  - Therapy partial responder [Unknown]
